FAERS Safety Report 11864252 (Version 1)
Quarter: 2015Q4

REPORT INFORMATION
  Report Type: Spontaneous
  Country: FR (occurrence: FR)
  Receive Date: 20151223
  Receipt Date: 20151223
  Transmission Date: 20160305
  Serious: Yes (Life-Threatening, Hospitalization)
  Sender: FDA-Public Use
  Company Number: FR-PFIZER INC-2015457238

PATIENT
  Age: 62 Year
  Sex: Male
  Weight: 71 kg

DRUGS (9)
  1. ADVIL [Suspect]
     Active Substance: IBUPROFEN
     Dosage: 2 DF, SINGLE
     Route: 048
     Dates: start: 20150919, end: 20150919
  2. ACTISKENAN [Suspect]
     Active Substance: MORPHINE SULFATE
     Dosage: 10 MG, EVERY 6 HOURS
     Dates: start: 20150918, end: 20150919
  3. VASTEN /00880402/ [Concomitant]
     Active Substance: PRAVASTATIN SODIUM
     Dosage: 1 DF, DAILY
  4. COZAAR [Suspect]
     Active Substance: LOSARTAN POTASSIUM
     Dosage: 1 DF, DAILY
     Route: 048
  5. SKENAN [Suspect]
     Active Substance: MORPHINE SULFATE
     Dosage: 30 MG, 2X/DAY
     Dates: start: 20150918, end: 20150919
  6. PRAXILENE [Concomitant]
     Active Substance: NAFRONYL
     Dosage: 3 DF, DAILY
  7. PLAVIX [Concomitant]
     Active Substance: CLOPIDOGREL BISULFATE
     Dosage: 1 DF, DAILY
  8. GURONSAN /00818401/ [Concomitant]
     Dosage: UNK
  9. IXPRIM [Concomitant]
     Active Substance: ACETAMINOPHEN\TRAMADOL HYDROCHLORIDE
     Dosage: UNK

REACTIONS (3)
  - Acute kidney injury [Recovering/Resolving]
  - Hyperkalaemia [Recovered/Resolved]
  - Renal tubular necrosis [Recovering/Resolving]

NARRATIVE: CASE EVENT DATE: 20150920
